FAERS Safety Report 9087225 (Version 2)
Quarter: 2013Q1

REPORT INFORMATION
  Report Type: Spontaneous
  Country: US (occurrence: US)
  Receive Date: 20130201
  Receipt Date: 20130222
  Transmission Date: 20140127
  Serious: No
  Sender: FDA-Public Use
  Company Number: US-PFIZER INC-2013038972

PATIENT
  Age: 59 Year
  Sex: Female
  Weight: 86.17 kg

DRUGS (7)
  1. PRISTIQ [Suspect]
     Indication: DEPRESSION
     Dosage: 150 MG, 1X/DAY
     Route: 048
  2. TRAMADOL [Suspect]
     Indication: FIBROMYALGIA
     Dosage: 37.5/325 MG, 2X/DAY
     Route: 048
  3. TRAMADOL [Suspect]
     Indication: PAIN
  4. LISINOPRIL [Concomitant]
     Indication: HYPERTENSION
     Dosage: 10 MG, 1X/DAY
  5. SIMVASTATIN [Concomitant]
     Indication: BLOOD CHOLESTEROL INCREASED
     Dosage: 40 MG, 1X/DAY
  6. METFORMIN [Concomitant]
     Dosage: 500 MG, 1X/DAY
  7. ZOLPIDEM [Concomitant]
     Dosage: 12.5 MG, 1X/DAY

REACTIONS (1)
  - Agitation [Unknown]
